FAERS Safety Report 13043601 (Version 6)
Quarter: 2017Q1

REPORT INFORMATION
  Report Type: Report from Study
  Country: AT (occurrence: AT)
  Receive Date: 20161220
  Receipt Date: 20170227
  Transmission Date: 20170428
  Serious: Yes (Death, Hospitalization, Other)
  Sender: FDA-Public Use
  Company Number: AT-INCYTE CORPORATION-2014IN001682

PATIENT
  Age: 61 Year
  Sex: Male
  Weight: 74 kg

DRUGS (44)
  1. HYDAL [Concomitant]
     Active Substance: HYDROMORPHONE HYDROCHLORIDE
     Indication: BONE PAIN
  2. UROSIN [Concomitant]
     Active Substance: ALLOPURINOL
     Indication: PRODUCT USED FOR UNKNOWN INDICATION
     Dosage: UNK
     Route: 065
     Dates: start: 20101014
  3. PASPERTIN [Concomitant]
     Active Substance: METOCLOPRAMIDE HYDROCHLORIDE
     Indication: PRODUCT USED FOR UNKNOWN INDICATION
     Dosage: UNK UNK, PRN
     Route: 041
     Dates: start: 20150218
  4. KYTRIL [Concomitant]
     Active Substance: GRANISETRON HYDROCHLORIDE
     Indication: GASTRITIS PROPHYLAXIS
  5. CALCIUM GLYCEROPHOSPHATE\CELLULOSE\POLYETHYLENE GLYCOL\SACCHARIN SODIUM\SODIUM HYDROXIDE\SODIUM LAURYL SULFATE\SODIUM MAGNESIUM SILICATE\SODIUM MONOFLUOROPHOSPHATE\SORBITOL\WATER [Concomitant]
     Active Substance: CALCIUM GLYCEROPHOSPHATE\POLYETHYLENE GLYCOLS\POWDERED CELLULOSE\SACCHARIN SODIUM DIHYDRATE\SODIUM HYDROXIDE\SODIUM LAURYL SULFATE\SODIUM MAGNESIUM SILICATE\SODIUM MONOFLUOROPHOSPHATE\SORBITOL\WATER
     Indication: CONSTIPATION PROPHYLAXIS
  6. VIDAZA [Concomitant]
     Active Substance: AZACITIDINE
     Dosage: 100 MG, UNK
     Route: 065
     Dates: start: 20160805, end: 20160811
  7. HYDAL [Concomitant]
     Active Substance: HYDROMORPHONE HYDROCHLORIDE
     Indication: BACK PAIN
     Dosage: UNK
     Route: 065
     Dates: start: 20111118
  8. LAEVOLAC [Concomitant]
     Active Substance: LACTULOSE
     Indication: CONSTIPATION PROPHYLAXIS
  9. XYLOCAINE [Concomitant]
     Active Substance: LIDOCAINE HYDROCHLORIDE
     Indication: HERPES VIRUS INFECTION
     Dosage: UNK
     Route: 065
     Dates: start: 20130217, end: 20150427
  10. KONAKION [Concomitant]
     Active Substance: PHYTONADIONE
     Indication: THROMBOCYTOPENIA
     Dosage: UNK
     Route: 065
     Dates: start: 20150128, end: 20150128
  11. GASTROSIL [Concomitant]
     Indication: PRODUCT USED FOR UNKNOWN INDICATION
     Dosage: UNK
     Route: 065
     Dates: start: 20160514, end: 20160906
  12. JAKAVI [Suspect]
     Active Substance: RUXOLITINIB
     Dosage: 10 MG, BID (1-0-1)
     Route: 048
     Dates: start: 20150218, end: 20150323
  13. ALEXAN [Concomitant]
     Active Substance: SPIRONOLACTONE
     Indication: SPLENOMEGALY
  14. VIDAZA [Concomitant]
     Active Substance: AZACITIDINE
     Dosage: 50 MG, QD
     Route: 065
     Dates: start: 20160514, end: 20160707
  15. VIDAZA [Concomitant]
     Active Substance: AZACITIDINE
     Dosage: 100 MG, QD
     Route: 065
     Dates: start: 20160708, end: 20160712
  16. PANTOLOC [Concomitant]
     Active Substance: PANTOPRAZOLE SODIUM
     Indication: PRODUCT USED FOR UNKNOWN INDICATION
     Dosage: UNK
     Route: 065
     Dates: start: 20101014
  17. CETRIZIN [Concomitant]
     Indication: PRURITUS GENERALISED
     Dosage: UNK
     Route: 065
     Dates: start: 20120116, end: 20131114
  18. GUTTALAX [Concomitant]
     Indication: PRODUCT USED FOR UNKNOWN INDICATION
     Dosage: UNK
     Route: 065
     Dates: start: 20170106
  19. NAVOBAN [Concomitant]
     Active Substance: TROPISETRON HYDROCHLORIDE
     Indication: PRODUCT USED FOR UNKNOWN INDICATION
     Dosage: UNK
     Route: 065
     Dates: start: 20150218, end: 20160906
  20. UROSIN [Concomitant]
     Active Substance: ALLOPURINOL
     Indication: PROPHYLAXIS
  21. LAEVOLAC [Concomitant]
     Active Substance: LACTULOSE
     Indication: PRODUCT USED FOR UNKNOWN INDICATION
     Dosage: UNK
     Route: 065
     Dates: start: 20120130, end: 20131114
  22. BEPANTHEN [Concomitant]
     Active Substance: DEXPANTHENOL
     Indication: STOMATITIS
  23. XYLOCAINE [Concomitant]
     Active Substance: LIDOCAINE HYDROCHLORIDE
     Indication: MOUTH ULCERATION
     Dosage: UNK
     Route: 065
     Dates: start: 201602
  24. IDARUBICIN [Concomitant]
     Active Substance: IDARUBICIN
     Indication: PRODUCT USED FOR UNKNOWN INDICATION
     Dosage: 10 MG/M2, 4 WEEKLY
     Route: 065
     Dates: start: 20160930
  25. CALCIUM GLYCEROPHOSPHATE\CELLULOSE\POLYETHYLENE GLYCOL\SACCHARIN SODIUM\SODIUM HYDROXIDE\SODIUM LAURYL SULFATE\SODIUM MAGNESIUM SILICATE\SODIUM MONOFLUOROPHOSPHATE\SORBITOL\WATER [Concomitant]
     Active Substance: CALCIUM GLYCEROPHOSPHATE\POLYETHYLENE GLYCOLS\POWDERED CELLULOSE\SACCHARIN SODIUM DIHYDRATE\SODIUM HYDROXIDE\SODIUM LAURYL SULFATE\SODIUM MAGNESIUM SILICATE\SODIUM MONOFLUOROPHOSPHATE\SORBITOL\WATER
     Indication: PRODUCT USED FOR UNKNOWN INDICATION
     Dosage: UNK
     Route: 065
     Dates: start: 20150427
  26. VIDAZA [Concomitant]
     Active Substance: AZACITIDINE
     Dosage: 100 MG, UNK
     Route: 065
     Dates: start: 20161128, end: 20161204
  27. BEPANTHEN [Concomitant]
     Active Substance: DEXPANTHENOL
     Indication: HERPES VIRUS INFECTION
     Dosage: UNK
     Route: 065
     Dates: start: 20130415, end: 20130920
  28. VALACYCLOVIR [Concomitant]
     Active Substance: VALACYCLOVIR HYDROCHLORIDE
     Indication: HERPES VIRUS INFECTION
     Dosage: UNK
     Route: 065
     Dates: start: 20130808, end: 20150428
  29. MEVIR [Concomitant]
     Indication: HERPES VIRUS INFECTION
     Dosage: UNK
     Route: 065
     Dates: start: 20130920, end: 20131004
  30. KYTRIL [Concomitant]
     Active Substance: GRANISETRON HYDROCHLORIDE
     Indication: PRODUCT USED FOR UNKNOWN INDICATION
     Dosage: UNK
     Route: 065
     Dates: start: 20150410
  31. ALEXAN [Concomitant]
     Active Substance: SPIRONOLACTONE
     Indication: ERYTHROBLAST COUNT
     Dosage: 1 DF, QD
     Route: 058
     Dates: start: 20150218, end: 20160324
  32. ZAVEDOS [Concomitant]
     Active Substance: IDARUBICIN
     Indication: SPLENOMEGALY
     Route: 065
     Dates: start: 20161228
  33. BEPANTEN [Concomitant]
     Indication: HERPES VIRUS INFECTION
     Route: 048
     Dates: start: 20130415, end: 20130920
  34. ZOVIRAX [Concomitant]
     Active Substance: ACYCLOVIR
     Indication: HERPES VIRUS INFECTION
     Dosage: UNK
     Route: 065
     Dates: start: 20131008
  35. GASTROSIL [Concomitant]
     Indication: GASTRITIS PROPHYLAXIS
     Dosage: UNK
     Route: 065
     Dates: start: 20160514, end: 20160916
  36. JAKAVI [Suspect]
     Active Substance: RUXOLITINIB
     Indication: MYELOFIBROSIS
     Dosage: 20 MG, BID
     Route: 048
     Dates: start: 20110926, end: 20130821
  37. BEPANTEN [Concomitant]
     Indication: ORAL HERPES
  38. NAVOBAN [Concomitant]
     Active Substance: TROPISETRON HYDROCHLORIDE
     Indication: GASTRITIS PROPHYLAXIS
     Dosage: UNK
     Route: 065
     Dates: start: 20160514, end: 20160906
  39. NAVOBAN [Concomitant]
     Active Substance: TROPISETRON HYDROCHLORIDE
     Dosage: UNK
     Route: 065
     Dates: start: 20150218, end: 20150323
  40. PASPERTIN [Concomitant]
     Active Substance: METOCLOPRAMIDE HYDROCHLORIDE
     Indication: GASTRITIS PROPHYLAXIS
  41. OLEOVIT D3 [Concomitant]
     Active Substance: CHOLECALCIFEROL
     Indication: VITAMIN D DECREASED
     Dosage: UNK
     Route: 065
     Dates: start: 20151020
  42. JAKAVI [Suspect]
     Active Substance: RUXOLITINIB
     Dosage: 10 MG, BID (1-0-1)
     Route: 048
     Dates: start: 20150428, end: 20170109
  43. VIDAZA [Concomitant]
     Active Substance: AZACITIDINE
     Indication: PRODUCT USED FOR UNKNOWN INDICATION
     Dosage: 100 MG, UNK
     Route: 065
     Dates: start: 20160514, end: 20161204
  44. GUTTALAX [Concomitant]
     Indication: PROPHYLAXIS

REACTIONS (17)
  - Infection [Recovered/Resolved]
  - Acute myeloid leukaemia [Unknown]
  - Urinary tract infection [Unknown]
  - Peripheral swelling [Recovered/Resolved]
  - Haemolysis [Unknown]
  - Dyschezia [Unknown]
  - Mouth ulceration [Recovered/Resolved with Sequelae]
  - Abdominal pain [Unknown]
  - Anaemia [Unknown]
  - Dyspnoea [Recovered/Resolved]
  - Thrombocytopenia [Not Recovered/Not Resolved]
  - Limb injury [Recovered/Resolved]
  - Pneumonia [Recovered/Resolved]
  - Pneumonia [Fatal]
  - Abdominal pain upper [Recovered/Resolved]
  - Pleural effusion [Unknown]
  - Dyspnoea [Recovered/Resolved]

NARRATIVE: CASE EVENT DATE: 20111010
